FAERS Safety Report 15216862 (Version 2)
Quarter: 2018Q3

REPORT INFORMATION
  Report Type: Spontaneous
  Country: US (occurrence: US)
  Receive Date: 20180730
  Receipt Date: 20180824
  Transmission Date: 20181010
  Serious: Yes (Hospitalization)
  Sender: FDA-Public Use
  Company Number: US-ACTELION-A-NJ2018-176333

PATIENT
  Age: 19 Month
  Sex: Male

DRUGS (5)
  1. TRACLEER [Suspect]
     Active Substance: BOSENTAN
     Indication: PULMONARY HYPERTENSION
     Dosage: 31.25 MG, BID
     Route: 048
     Dates: start: 201706
  2. ALBUTEROL. [Concomitant]
     Active Substance: ALBUTEROL
  3. SILDENAFIL. [Concomitant]
     Active Substance: SILDENAFIL
     Indication: PULMONARY ARTERIAL HYPERTENSION
     Dosage: 8 MG, QID
     Dates: start: 201706
  4. RANITIDINE. [Concomitant]
     Active Substance: RANITIDINE
     Dosage: 37.5 MG, BID
  5. FLOVENT [Concomitant]
     Active Substance: FLUTICASONE PROPIONATE
     Dosage: 2 PUFFS, BID

REACTIONS (1)
  - Adenotonsillectomy [Recovered/Resolved]
